FAERS Safety Report 20476115 (Version 3)
Quarter: 2023Q4

REPORT INFORMATION
  Report Type: Report from Study
  Country: US (occurrence: US)
  Receive Date: 20220215
  Receipt Date: 20231207
  Transmission Date: 20240110
  Serious: Yes (Other)
  Sender: FDA-Public Use
  Company Number: US-NOVARTISPH-NVSC2022US032283

PATIENT
  Sex: Female

DRUGS (1)
  1. XIIDRA [Suspect]
     Active Substance: LIFITEGRAST
     Indication: Dry eye
     Dosage: 0.4 UNK, BID
     Dates: start: 20210315

REACTIONS (4)
  - Deafness [Unknown]
  - Dementia [Unknown]
  - Bradyphrenia [Unknown]
  - Malaise [Unknown]
